FAERS Safety Report 4413009-9 (Version None)
Quarter: 2004Q3

REPORT INFORMATION
  Report Type: 
  Country: None (occurrence: None)
  Receive Date: 20040802
  Receipt Date: 20040506
  Transmission Date: 20050211
  Serious: No
  Sender: FDA-Public Use
  Company Number: US-GLAXOSMITHKLINE-A0509858A

PATIENT
  Age: 4 Month
  Sex: Male

DRUGS (2)
  1. ZANTAC [Suspect]
     Dosage: .8ML AS REQUIRED
     Route: 048
     Dates: start: 20040101
  2. MULTIVITAMIN [Concomitant]

REACTIONS (1)
  - VOMITING [None]
